FAERS Safety Report 18378493 (Version 1)
Quarter: 2020Q4

REPORT INFORMATION
  Report Type: Spontaneous
  Country: US (occurrence: US)
  Receive Date: 20201013
  Receipt Date: 20201013
  Transmission Date: 20210114
  Serious: No
  Sender: FDA-Public Use
  Company Number: US-GLAXOSMITHKLINE-US2020AMR201363

PATIENT
  Sex: Female

DRUGS (1)
  1. NUCALA [Suspect]
     Active Substance: MEPOLIZUMAB
     Indication: PULMONARY VASCULITIS
     Dosage: 300 MG, CYC

REACTIONS (4)
  - Dyspnoea [Unknown]
  - Cough [Unknown]
  - Illness [Unknown]
  - Product use in unapproved indication [Unknown]
